FAERS Safety Report 16860788 (Version 2)
Quarter: 2020Q1

REPORT INFORMATION
  Report Type: Report from Study
  Country: None (occurrence: US)
  Receive Date: 20190927
  Receipt Date: 20200107
  Transmission Date: 20200409
  Serious: Yes (Other)
  Sender: FDA-Public Use
  Company Number: US-ABBVIE-19K-163-2934695-00

PATIENT
  Sex: Female
  Weight: 86.26 kg

DRUGS (1)
  1. HUMIRA [Suspect]
     Active Substance: ADALIMUMAB
     Indication: PSORIASIS
     Dosage: 1ST TO DAY 15TH
     Route: 058

REACTIONS (6)
  - Atrial fibrillation [Unknown]
  - Dizziness [Unknown]
  - Fall [Unknown]
  - Limb operation [Unknown]
  - Cardio-respiratory arrest [Unknown]
  - Dyspnoea [Unknown]
